FAERS Safety Report 13676260 (Version 1)
Quarter: 2017Q2

REPORT INFORMATION
  Report Type: Spontaneous
  Country: US (occurrence: US)
  Receive Date: 20170622
  Receipt Date: 20170622
  Transmission Date: 20170830
  Serious: Yes (Death, Hospitalization)
  Sender: FDA-Public Use
  Company Number: US-ROCHE-1951663

PATIENT
  Age: 69 Year
  Sex: Female

DRUGS (1)
  1. ACTILYSE [Suspect]
     Active Substance: ALTEPLASE
     Indication: ISCHAEMIC STROKE
     Dosage: DOSE: 2.5 HOURS
     Route: 042

REACTIONS (3)
  - Cardiogenic shock [Fatal]
  - Cardiac tamponade [Fatal]
  - Ventricle rupture [Fatal]
